FAERS Safety Report 19115529 (Version 2)
Quarter: 2021Q2

REPORT INFORMATION
  Report Type: Spontaneous
  Country: JP (occurrence: JP)
  Receive Date: 20210409
  Receipt Date: 20210521
  Transmission Date: 20210717
  Serious: Yes (Other)
  Sender: FDA-Public Use
  Company Number: JP-REGENERON PHARMACEUTICALS, INC.-2021-40596

PATIENT

DRUGS (20)
  1. EYLEA [Suspect]
     Active Substance: AFLIBERCEPT
     Dosage: LEFT EYE, 2MG
     Dates: start: 20200407
  2. EYLEA [Suspect]
     Active Substance: AFLIBERCEPT
     Dosage: LEFT EYE, 2MG
     Dates: start: 20190904
  3. EYLEA [Suspect]
     Active Substance: AFLIBERCEPT
     Dosage: LEFT EYE, ONCE
     Route: 031
     Dates: start: 202010, end: 202010
  4. AVELOX [Concomitant]
     Active Substance: MOXIFLOXACIN HYDROCHLORIDE
     Dosage: DAILY DOSE ONE TABLETS(400DF)
     Route: 048
     Dates: start: 20190904, end: 20190906
  5. AVELOX [Concomitant]
     Active Substance: MOXIFLOXACIN HYDROCHLORIDE
     Dosage: DAILY DOSE ONE TABLETS(400DF)
     Route: 048
     Dates: start: 20200826, end: 20200828
  6. GATIFLO [Concomitant]
     Active Substance: GATIFLOXACIN
     Indication: INFECTION PROPHYLAXIS
     Dosage: LEFT EYE, 4 TIMES PER DAY
     Route: 031
     Dates: start: 20190508, end: 20190515
  7. GATIFLO [Concomitant]
     Active Substance: GATIFLOXACIN
     Dosage: LEFT EYE, 4 TIMES PER DAY
     Route: 031
     Dates: start: 20200407, end: 20200414
  8. EYLEA [Suspect]
     Active Substance: AFLIBERCEPT
     Dosage: LEFT EYE, 2MG
     Dates: start: 20210329
  9. AVELOX [Concomitant]
     Active Substance: MOXIFLOXACIN HYDROCHLORIDE
     Dosage: DAILY DOSE ONE TABLETS(400DF)
     Route: 048
     Dates: start: 20200407, end: 20200409
  10. EYLEA [Suspect]
     Active Substance: AFLIBERCEPT
     Indication: RETINAL VEIN OCCLUSION
     Dosage: UNK MG, UNK
     Dates: start: 20190508
  11. EYLEA [Suspect]
     Active Substance: AFLIBERCEPT
     Dosage: LEFT EYE, 2MG
     Dates: start: 20191204
  12. EYLEA [Suspect]
     Active Substance: AFLIBERCEPT
     Dosage: LEFT EYE, 2MG
     Dates: start: 20200826
  13. AVELOX [Concomitant]
     Active Substance: MOXIFLOXACIN HYDROCHLORIDE
     Indication: INFECTION PROPHYLAXIS
     Dosage: DAILY DOSE ONE TABLETS(400DF)
     Route: 048
     Dates: start: 20190508, end: 20190510
  14. GATIFLO [Concomitant]
     Active Substance: GATIFLOXACIN
     Dosage: LEFT EYE, 4 TIMES PER DAY
     Route: 031
     Dates: start: 20191204, end: 20191211
  15. GATIFLO [Concomitant]
     Active Substance: GATIFLOXACIN
     Dosage: LEFT EYE, 4 TIMES PER DAY
     Route: 031
     Dates: start: 20200826, end: 20200902
  16. AVELOX [Concomitant]
     Active Substance: MOXIFLOXACIN HYDROCHLORIDE
     Dosage: DAILY DOSE ONE TABLETS(400DF)
     Route: 048
     Dates: start: 20210329, end: 20210331
  17. GATIFLO [Concomitant]
     Active Substance: GATIFLOXACIN
     Dosage: LEFT EYE, 4 TIMES PER DAY
     Route: 031
     Dates: start: 20210329, end: 20210404
  18. RINDERON A [Concomitant]
     Active Substance: BETAMETHASONE SODIUM PHOSPHATE\NEOMYCIN SULFATE
     Indication: PRODUCT USED FOR UNKNOWN INDICATION
     Dosage: LEFT EYE,THREE TIMES PER DAY
  19. EYLEA [Suspect]
     Active Substance: AFLIBERCEPT
     Dosage: LEFT EYE, ONCE
     Route: 031
     Dates: start: 202103, end: 202103
  20. AVELOX [Concomitant]
     Active Substance: MOXIFLOXACIN HYDROCHLORIDE
     Dosage: UNK

REACTIONS (11)
  - Uveitis [Recovered/Resolved]
  - Ciliary body disorder [Unknown]
  - Hypotony of eye [Unknown]
  - Pain [Recovered/Resolved]
  - Choroidal detachment [Unknown]
  - Uveitis [Recovered/Resolved]
  - Uveitis [Recovered/Resolved]
  - Uveitis [Recovered/Resolved]
  - Choroidal detachment [Unknown]
  - Swelling of eyelid [Unknown]
  - Choroidal detachment [Unknown]

NARRATIVE: CASE EVENT DATE: 20190904
